FAERS Safety Report 6192552-9 (Version None)
Quarter: 2009Q2

REPORT INFORMATION
  Report Type: 
  Country: None (occurrence: None)
  Receive Date: 20090514
  Receipt Date: 20090514
  Transmission Date: 20091009
  Serious: No
  Sender: FDA-Public Use
  Company Number: None

PATIENT
  Sex: Female

DRUGS (1)
  1. PROPOFOL [Suspect]
     Indication: OESOPHAGOGASTRODUODENOSCOPY
     Dosage: 100 MG IV
     Route: 042
     Dates: start: 20090504

REACTIONS (9)
  - CHILLS [None]
  - DEHYDRATION [None]
  - DELIRIUM [None]
  - HEADACHE [None]
  - MYALGIA [None]
  - NAUSEA [None]
  - PAIN [None]
  - PYREXIA [None]
  - VOMITING [None]
